FAERS Safety Report 19887191 (Version 1)
Quarter: 2021Q3

REPORT INFORMATION
  Report Type: Spontaneous
  Country: ES (occurrence: ES)
  Receive Date: 20210928
  Receipt Date: 20210928
  Transmission Date: 20211014
  Serious: Yes (Disabling)
  Sender: FDA-Public Use
  Company Number: ES-TEVA-2021-ES-1957969

PATIENT
  Age: 25 Year
  Sex: Male

DRUGS (4)
  1. DOXORUBICINA (202A) [Suspect]
     Active Substance: DOXORUBICIN HYDROCHLORIDE
     Indication: CHEMOTHERAPY
     Dates: start: 20020430, end: 20020605
  2. VINCRISTINA (809A) [Suspect]
     Active Substance: VINCRISTINE SULFATE
     Dates: start: 200204, end: 200206
  3. CICLOFOSFAMIDA (120A) [Suspect]
     Active Substance: CYCLOPHOSPHAMIDE
     Dates: start: 200204, end: 200206
  4. PREDNISONA (886A) [Concomitant]
     Active Substance: PREDNISONE
     Dates: start: 200204, end: 200206

REACTIONS (1)
  - Cardiomyopathy [Recovered/Resolved with Sequelae]

NARRATIVE: CASE EVENT DATE: 20170315
